FAERS Safety Report 5417166-7 (Version None)
Quarter: 2007Q3

REPORT INFORMATION
  Report Type: 
  Country: None (occurrence: None)
  Receive Date: 20070718
  Receipt Date: 20060922
  Transmission Date: 20080115
  Serious: Yes (Hospitalization, Other)
  Sender: FDA-Public Use
  Company Number: 2005134635

PATIENT
  Age: 41 Year
  Sex: Female

DRUGS (3)
  1. CELEBREX [Suspect]
     Dosage: (200 MG)
  2. BEXTRA [Suspect]
     Dosage: (20 MG)
  3. VIOXX [Suspect]

REACTIONS (1)
  - EMBOLISM [None]
